FAERS Safety Report 11214949 (Version 2)
Quarter: 2015Q3

REPORT INFORMATION
  Report Type: Spontaneous
  Country: US (occurrence: US)
  Receive Date: 20150624
  Receipt Date: 20150706
  Transmission Date: 20151125
  Serious: No
  Sender: FDA-Public Use
  Company Number: US-BAYER-2015-362551

PATIENT

DRUGS (1)
  1. ALEVE [Suspect]
     Active Substance: NAPROXEN SODIUM

REACTIONS (8)
  - Urticaria [Unknown]
  - Lip swelling [Unknown]
  - Ocular hyperaemia [Unknown]
  - Dysphagia [Unknown]
  - Erythema [Unknown]
  - Pruritus [Unknown]
  - Abdominal pain upper [Unknown]
  - Diarrhoea [Unknown]
